FAERS Safety Report 15774086 (Version 2)
Quarter: 2020Q3

REPORT INFORMATION
  Report Type: Report from Study
  Country: PT (occurrence: PT)
  Receive Date: 20181229
  Receipt Date: 20200909
  Transmission Date: 20201102
  Serious: Yes (Other)
  Sender: FDA-Public Use
  Company Number: PT-AUROBINDO-AUR-APL-2016-15117

PATIENT
  Age: 27 Year

DRUGS (2)
  1. AMOXICILLIN+CLAVULANIC ACID 400MG+57 MG/5ML [Suspect]
     Active Substance: AMOXICILLIN\CLAVULANIC ACID
     Indication: PRODUCT USED FOR UNKNOWN INDICATION
     Dosage: UNK
     Route: 065
  2. CEFUROXIME. [Suspect]
     Active Substance: CEFUROXIME
     Indication: PRODUCT USED FOR UNKNOWN INDICATION
     Dosage: UNKNOWN
     Route: 048

REACTIONS (6)
  - Pruritus [Unknown]
  - Urticaria [Unknown]
  - Angioedema [Unknown]
  - Localised oedema [Unknown]
  - Anaphylactic reaction [Unknown]
  - Loss of consciousness [Unknown]
